FAERS Safety Report 23171780 (Version 1)
Quarter: 2023Q4

REPORT INFORMATION
  Report Type: Spontaneous
  Country: IT (occurrence: IT)
  Receive Date: 20231110
  Receipt Date: 20231110
  Transmission Date: 20240110
  Serious: Yes (Other)
  Sender: FDA-Public Use
  Company Number: None

PATIENT
  Age: 68 Year
  Sex: Male

DRUGS (8)
  1. VECTIBIX [Suspect]
     Active Substance: PANITUMUMAB
     Indication: Intestinal adenocarcinoma
     Dosage: 320 MILLIGRAM
     Route: 042
     Dates: start: 20220207
  2. OXALIPLATIN [Suspect]
     Active Substance: OXALIPLATIN
     Indication: Intestinal adenocarcinoma
     Dosage: 120 MILLIGRAM
     Route: 040
     Dates: start: 20220207, end: 20221012
  3. FLUOROURACIL [Suspect]
     Active Substance: FLUOROURACIL
     Indication: Intestinal adenocarcinoma
     Dosage: 550 MILLIGRAM (OTAL DOSE: 550 MG IN BOLUS AND 1700 MG IN CONTINUOUS INFUSION VIA ELASTOMER )
     Route: 040
     Dates: start: 20220207, end: 20221012
  4. FLUOROURACIL [Suspect]
     Active Substance: FLUOROURACIL
     Dosage: 1700 MILLIGRAM (OTAL DOSE: 550 MG IN BOLUS AND 1700 MG IN CONTINUOUS INFUSION VIA ELASTOMER )
     Route: 040
     Dates: start: 20220207, end: 20221012
  5. ONDANSETRON [Concomitant]
     Active Substance: ONDANSETRON
     Dosage: 8 MILLIGRAM
     Route: 040
  6. CHLORPHENIRAMINE MALEATE [Concomitant]
     Active Substance: CHLORPHENIRAMINE MALEATE
     Dosage: 10 MILLIGRAM
     Route: 040
  7. DEXAMETHASONE [Concomitant]
     Active Substance: DEXAMETHASONE
     Dosage: 8 MILLIGRAM
     Route: 040
  8. LEVOLEUCOVORIN [Concomitant]
     Active Substance: LEVOLEUCOVORIN
     Dosage: 150 MILLIGRAM
     Route: 040

REACTIONS (4)
  - Thrombocytopenia [Recovered/Resolved]
  - Infusion related reaction [Recovered/Resolved]
  - Leukocytosis [Recovered/Resolved]
  - Body temperature increased [Recovered/Resolved]

NARRATIVE: CASE EVENT DATE: 20221012
